FAERS Safety Report 5515392-X (Version None)
Quarter: 2007Q4

REPORT INFORMATION
  Report Type: 
  Country: None (occurrence: None)
  Receive Date: 20071109
  Receipt Date: 20071030
  Transmission Date: 20080405
  Serious: Yes (Hospitalization)
  Sender: FDA-Public Use
  Company Number: TCI2007A05899

PATIENT
  Sex: Male

DRUGS (2)
  1. ACTOS [Suspect]
     Dosage: 30 MG (30 MG,1 D) PER ORAL
     Route: 048
  2. GLYBURIDE [Concomitant]

REACTIONS (1)
  - MYOCARDIAL INFARCTION [None]
